FAERS Safety Report 7807235-6 (Version None)
Quarter: 2011Q4

REPORT INFORMATION
  Report Type: 
  Country: None (occurrence: None)
  Receive Date: 20111011
  Receipt Date: 20111007
  Transmission Date: 20120403
  Serious: Yes (Hospitalization, Other)
  Sender: FDA-Public Use
  Company Number: JP-PFIZER INC-2011239348

PATIENT
  Age: 65 Year
  Sex: Male
  Weight: 65 kg

DRUGS (14)
  1. LYRICA [Suspect]
     Dosage: UNK
     Route: 048
     Dates: start: 20110912, end: 20110913
  2. NITROPEN [Concomitant]
  3. NORVASC [Concomitant]
  4. LOXONIN [Concomitant]
  5. ROHYPNOL [Concomitant]
     Indication: INSOMNIA
     Dosage: 2 MG, 1X/DAY
     Route: 048
     Dates: start: 20110602
  6. MAGMITT [Concomitant]
  7. DIAZEPAM [Concomitant]
     Indication: TINNITUS
     Dosage: 2 MG, 3X/DAY
     Route: 048
     Dates: start: 20110602
  8. PURSENNID [Concomitant]
  9. LYRICA [Suspect]
     Indication: NEUROPATHY PERIPHERAL
     Dosage: 150 MG, 2X/DAY
     Route: 048
     Dates: start: 20110909, end: 20110910
  10. ASPIRIN [Concomitant]
  11. NITRAZEPAM [Concomitant]
     Indication: INSOMNIA
     Dosage: 5 MG, 1X/DAY
     Route: 048
  12. CARVEDILOL [Concomitant]
  13. DEPAS [Concomitant]
     Indication: TINNITUS
     Dosage: 1.5 MG, 3X/DAY
     Route: 048
  14. METHYCOBAL [Concomitant]

REACTIONS (4)
  - TOXICITY TO VARIOUS AGENTS [None]
  - ASTHENIA [None]
  - DIZZINESS [None]
  - ALTERED STATE OF CONSCIOUSNESS [None]
